FAERS Safety Report 6241927-8 (Version None)
Quarter: 2009Q2

REPORT INFORMATION
  Report Type: 
  Country: None (occurrence: None)
  Receive Date: 20090622
  Receipt Date: 20090604
  Transmission Date: 20091009
  Serious: Yes (Other)
  Sender: FDA-Public Use
  Company Number: 2009-198199-NL

PATIENT
  Age: 40 Year
  Sex: Female
  Weight: 67.1 kg

DRUGS (1)
  1. IMPLANON [Suspect]
     Indication: CONTRACEPTION
     Dosage: SUBDERMAL
     Route: 059
     Dates: start: 20081003

REACTIONS (7)
  - CHILLS [None]
  - ENDOMETRIOSIS [None]
  - HOT FLUSH [None]
  - MENSTRUATION IRREGULAR [None]
  - NAUSEA [None]
  - NIGHT SWEATS [None]
  - POST PROCEDURAL HAEMORRHAGE [None]
